FAERS Safety Report 6697677-7 (Version None)
Quarter: 2010Q2

REPORT INFORMATION
  Report Type: 
  Country: None (occurrence: None)
  Receive Date: 20100426
  Receipt Date: 20100422
  Transmission Date: 20101027
  Serious: Yes (Other)
  Sender: FDA-Public Use
  Company Number: RU-MERCK-1004RUS00002

PATIENT
  Age: 46 Year
  Sex: Female

DRUGS (8)
  1. PRIMAXIN [Suspect]
     Indication: ABDOMINAL SEPSIS
     Route: 041
  2. PRIMAXIN [Suspect]
     Indication: PNEUMONIA
     Route: 041
  3. FUROSEMIDE [Concomitant]
     Indication: ABDOMINAL SEPSIS
     Route: 048
  4. FUROSEMIDE [Concomitant]
     Indication: PNEUMONIA
     Route: 048
  5. VANCOMYCIN [Concomitant]
     Indication: ABDOMINAL SEPSIS
     Route: 041
  6. VANCOMYCIN [Concomitant]
     Indication: PNEUMONIA
     Route: 041
  7. DEXTROSE AND ELECTROLYTES (UNSPECIFIED) [Concomitant]
     Indication: ABDOMINAL SEPSIS
     Route: 065
  8. DEXTROSE AND ELECTROLYTES (UNSPECIFIED) [Concomitant]
     Indication: PNEUMONIA
     Route: 065

REACTIONS (2)
  - CHILLS [None]
  - PYREXIA [None]
